FAERS Safety Report 10277992 (Version 3)
Quarter: 2014Q3

REPORT INFORMATION
  Report Type: Report from Study
  Country: FR (occurrence: FR)
  Receive Date: 20140704
  Receipt Date: 20140904
  Transmission Date: 20150326
  Serious: Yes (Life-Threatening, Hospitalization)
  Sender: FDA-Public Use
  Company Number: FR-009507513-1406FRA012469

PATIENT
  Age: 73 Year
  Sex: Male
  Weight: 78 kg

DRUGS (3)
  1. CASPOFUNGIN ACETATE [Suspect]
     Active Substance: CASPOFUNGIN ACETATE
     Indication: ANTI-INFECTIVE THERAPY
     Dosage: 50 MG, QD
     Route: 042
     Dates: start: 20140524, end: 20140620
  2. ZYVOXID [Concomitant]
     Active Substance: LINEZOLID
     Indication: ANTIBIOTIC THERAPY
     Dosage: 600 MG, BID
     Route: 042
     Dates: start: 20140608, end: 20140622
  3. IMIPENEM AND CILASTATIN [Concomitant]
     Active Substance: CILASTATIN SODIUM\IMIPENEM
     Indication: ANTIBIOTIC THERAPY
     Dosage: 1 G, TID
     Route: 042
     Dates: start: 20140604

REACTIONS (2)
  - Cardiopulmonary failure [Recovered/Resolved]
  - Lung infection [Not Recovered/Not Resolved]

NARRATIVE: CASE EVENT DATE: 20140619
